FAERS Safety Report 21776816 (Version 2)
Quarter: 2022Q4

REPORT INFORMATION
  Report Type: Spontaneous
  Country: US (occurrence: US)
  Receive Date: 20221226
  Receipt Date: 20221228
  Transmission Date: 20230113
  Serious: Yes (Other)
  Sender: FDA-Public Use
  Company Number: US-ABBVIE-4249400

PATIENT
  Age: 63 Year
  Sex: Female
  Weight: 74.842 kg

DRUGS (1)
  1. CREON [Suspect]
     Active Substance: PANCRELIPASE AMYLASE\PANCRELIPASE LIPASE\PANCRELIPASE PROTEASE
     Indication: Pancreatic failure
     Dosage: STRENGTH: 24000 UNITS, 1 CAP WITH MEALS, 1 CAP WITH SNACKS,?START DATE TEXT: AT LEAST NINE TO TEN...
     Route: 048
     Dates: start: 2012

REACTIONS (3)
  - Myocardial infarction [Recovered/Resolved]
  - Product prescribing error [Recovered/Resolved]
  - Stress [Recovering/Resolving]

NARRATIVE: CASE EVENT DATE: 20200531
